FAERS Safety Report 5913961-6 (Version None)
Quarter: 2008Q4

REPORT INFORMATION
  Report Type: 
  Country: None (occurrence: None)
  Receive Date: 20081009
  Receipt Date: 20081001
  Transmission Date: 20090506
  Serious: Yes (Other)
  Sender: FDA-Public Use
  Company Number: BE-AVENTIS-200819431GDDC

PATIENT
  Sex: Female

DRUGS (4)
  1. TAXOTERE [Suspect]
     Route: 042
     Dates: start: 20080201, end: 20080201
  2. TAXOTERE [Suspect]
     Route: 042
  3. BURINEX [Concomitant]
  4. METHYLPREDNISOLONE [Concomitant]
     Dosage: DOSE: UNK

REACTIONS (3)
  - CAPILLARY LEAK SYNDROME [None]
  - PLEURAL EFFUSION [None]
  - SKIN OEDEMA [None]
